FAERS Safety Report 8342809-8 (Version None)
Quarter: 2012Q2

REPORT INFORMATION
  Report Type: 
  Country: None (occurrence: None)
  Receive Date: 20120504
  Receipt Date: 20120504
  Transmission Date: 20120825
  Serious: Yes (Other)
  Sender: FDA-Public Use
  Company Number: None

PATIENT
  Age: 41 Year
  Sex: Female

DRUGS (1)
  1. ACETIC ACID [Suspect]
     Indication: VAGINAL ODOUR
     Dosage: SINGLE DOSE/VAGINAL
     Route: 067
     Dates: start: 20120403

REACTIONS (4)
  - DRUG ADMINISTRATION ERROR [None]
  - ABORTION SPONTANEOUS [None]
  - MATERNAL EXPOSURE DURING PREGNANCY [None]
  - OFF LABEL USE [None]
